FAERS Safety Report 5891761-3 (Version None)
Quarter: 2008Q3

REPORT INFORMATION
  Report Type: 
  Country: None (occurrence: None)
  Receive Date: 20080922
  Receipt Date: 20080910
  Transmission Date: 20090109
  Serious: Yes (Death, Life-Threatening)
  Sender: FDA-Public Use
  Company Number: JP-PFIZER INC-2008071625

PATIENT
  Sex: Female
  Weight: 57 kg

DRUGS (10)
  1. SU-011,248 [Suspect]
     Indication: GASTROINTESTINAL STROMAL TUMOUR
     Route: 048
     Dates: start: 20080804, end: 20080820
  2. AUGMENTIN '125' [Concomitant]
  3. PREDNISOLONE [Concomitant]
     Dates: start: 20080801
  4. SELBEX [Concomitant]
     Route: 048
     Dates: start: 20080801
  5. POLLAKISU [Concomitant]
     Route: 048
  6. ALFAROL [Concomitant]
     Route: 048
  7. TENORMIN [Concomitant]
     Route: 048
  8. BLOPRESS [Concomitant]
     Route: 048
     Dates: start: 20080801
  9. LANSOPRAZOLE [Concomitant]
     Dosage: FREQ:OD
     Route: 048
     Dates: start: 20080801
  10. MAGNESIUM OXIDE [Concomitant]
     Route: 048
     Dates: start: 20080801

REACTIONS (9)
  - ALANINE AMINOTRANSFERASE INCREASED [None]
  - ASPARTATE AMINOTRANSFERASE INCREASED [None]
  - BLOOD ALKALINE PHOSPHATASE INCREASED [None]
  - BLOOD LACTATE DEHYDROGENASE INCREASED [None]
  - DEATH [None]
  - PLATELET COUNT DECREASED [None]
  - PYREXIA [None]
  - SEPTIC SHOCK [None]
  - WHITE BLOOD CELL COUNT DECREASED [None]
